FAERS Safety Report 10861320 (Version 1)
Quarter: 2015Q1

REPORT INFORMATION
  Report Type: Spontaneous
  Country: DK (occurrence: DK)
  Receive Date: 20150224
  Receipt Date: 20150224
  Transmission Date: 20150721
  Serious: Yes (Life-Threatening, Hospitalization, Disabling)
  Sender: FDA-Public Use
  Company Number: DK-JNJFOC-20150207042

PATIENT
  Age: 36 Year
  Sex: Female
  Weight: 103.5 kg

DRUGS (1)
  1. NORETHINDRONE AND ETHINYL ESTRADIOL [Suspect]
     Active Substance: ETHINYL ESTRADIOL\NORETHINDRONE
     Indication: CONTRACEPTION
     Route: 048

REACTIONS (6)
  - Cognitive disorder [Not Recovered/Not Resolved]
  - Spastic paralysis [Not Recovered/Not Resolved]
  - Hemiplegia [Not Recovered/Not Resolved]
  - Thrombectomy [Recovered/Resolved]
  - Cerebral infarction [Recovered/Resolved with Sequelae]
  - Contraindication to medical treatment [Unknown]

NARRATIVE: CASE EVENT DATE: 201301
